APPROVED DRUG PRODUCT: TOTACILLIN-N
Active Ingredient: AMPICILLIN SODIUM
Strength: EQ 10GM BASE/VIAL
Dosage Form/Route: INJECTABLE;INJECTION
Application: A060677 | Product #006
Applicant: GLAXOSMITHKLINE
Approved: Approved Prior to Jan 1, 1982 | RLD: No | RS: No | Type: DISCN